FAERS Safety Report 4755634-1 (Version None)
Quarter: 2005Q3

REPORT INFORMATION
  Report Type: 
  Country: None (occurrence: None)
  Receive Date: 20050830
  Receipt Date: 20050609
  Transmission Date: 20060218
  Serious: No
  Sender: FDA-Public Use
  Company Number: US-BRISTOL-MYERS SQUIBB COMPANY-12998563

PATIENT
  Sex: Female
  Weight: 59 kg

DRUGS (7)
  1. ABILIFY [Suspect]
     Indication: SCHIZOAFFECTIVE DISORDER
     Route: 048
  2. INSULIN [Concomitant]
     Indication: DIABETES MELLITUS
  3. LANTUS [Concomitant]
  4. PRANDIN [Concomitant]
  5. PRECOSE [Concomitant]
  6. ACTOS [Concomitant]
  7. DEPAKOTE [Concomitant]

REACTIONS (2)
  - MANIA [None]
  - PARANOIA [None]
